FAERS Safety Report 5738920-8 (Version None)
Quarter: 2008Q2

REPORT INFORMATION
  Report Type: 
  Country: None (occurrence: None)
  Receive Date: 20080515
  Receipt Date: 20080509
  Transmission Date: 20081010
  Serious: Yes (Death)
  Sender: FDA-Public Use
  Company Number: US-ROCHE-563564

PATIENT
  Sex: Male

DRUGS (2)
  1. VALGANCICLOVIR HCL [Suspect]
     Route: 065
     Dates: start: 19980101, end: 20080507
  2. MYCOPHENOLATE MOFETIL [Suspect]
     Dosage: 3-4 PER DAY
     Route: 065
     Dates: start: 19980101, end: 20080507

REACTIONS (1)
  - MYOCARDIAL INFARCTION [None]
